FAERS Safety Report 8813307 (Version 1)
Quarter: 2012Q4

REPORT INFORMATION
  Report Type: 
  Country: US (occurrence: US)
  Receive Date: 20120927
  Receipt Date: 20120927
  Transmission Date: 20130627
  Serious: No
  Sender: FDA-Public Use
  Company Number: US-AMGEN-USASP2012052964

PATIENT
  Age: 55 Year
  Sex: Female
  Weight: 59.41 kg

DRUGS (6)
  1. PROLIA [Suspect]
     Indication: OSTEOPOROSIS
     Dosage: 1 ml, q6mo
     Route: 058
     Dates: start: 20120523
  2. SYNTHROID [Concomitant]
     Indication: HYPOTHYROIDISM
     Dosage: 25 mg, qd
     Route: 048
  3. ULTRAM [Concomitant]
     Dosage: UNK
  4. NEXIUM [Concomitant]
     Indication: VASCULAR GRAFT
     Dosage: 10 mg, qd
     Route: 048
  5. LORTAB [Concomitant]
     Dosage: UNK
  6. CYMBALTA [Concomitant]
     Indication: FIBROMYALGIA
     Dosage: 10 mg, qd
     Route: 048

REACTIONS (2)
  - Urine odour abnormal [Recovered/Resolved]
  - Musculoskeletal pain [Not Recovered/Not Resolved]
